FAERS Safety Report 23322708 (Version 1)
Quarter: 2023Q4

REPORT INFORMATION
  Report Type: Spontaneous
  Country: KR (occurrence: KR)
  Receive Date: 20231220
  Receipt Date: 20231220
  Transmission Date: 20240110
  Serious: Yes (Other)
  Sender: FDA-Public Use
  Company Number: KR-ANTENGENE-20230601788

PATIENT

DRUGS (4)
  1. XPOVIO [Suspect]
     Active Substance: SELINEXOR
     Indication: Plasma cell myeloma
     Dosage: 80 MG, BIW
     Route: 048
     Dates: start: 20230615, end: 20230624
  2. XPOVIO [Suspect]
     Active Substance: SELINEXOR
     Dosage: 100 MG, WEEKLY
     Route: 048
     Dates: start: 20230710, end: 20230717
  3. XPOVIO [Suspect]
     Active Substance: SELINEXOR
     Dosage: 60 MG, WEEKLY
     Route: 048
     Dates: start: 202308, end: 202308
  4. XPOVIO [Suspect]
     Active Substance: SELINEXOR
     Dosage: 60 MG, BIW
     Route: 048
     Dates: start: 202308, end: 20231103

REACTIONS (10)
  - Cervix carcinoma [Unknown]
  - Insomnia [Recovered/Resolved]
  - Pruritus [Recovered/Resolved]
  - Oesophageal achalasia [Recovered/Resolved]
  - Decreased appetite [Not Recovered/Not Resolved]
  - Weight decreased [Recovering/Resolving]
  - Asthenia [Not Recovered/Not Resolved]
  - Anaemia [Unknown]
  - Dyspnoea [Unknown]
  - Platelet count decreased [Unknown]

NARRATIVE: CASE EVENT DATE: 20230615
